FAERS Safety Report 5844941-7 (Version None)
Quarter: 2008Q3

REPORT INFORMATION
  Report Type: 
  Country: None (occurrence: None)
  Receive Date: 20080814
  Receipt Date: 20080717
  Transmission Date: 20090109
  Serious: Yes (Other)
  Sender: FDA-Public Use
  Company Number: DE-BAYER-200822575GPV

PATIENT

DRUGS (1)
  1. NEBIDO [Suspect]
     Indication: DRUG USE FOR UNKNOWN INDICATION

REACTIONS (2)
  - EXTRAOCULAR MUSCLE PARESIS [None]
  - VITH NERVE PARALYSIS [None]
